FAERS Safety Report 5048611-7 (Version None)
Quarter: 2006Q2

REPORT INFORMATION
  Report Type: 
  Country: None (occurrence: None)
  Receive Date: 20060626
  Receipt Date: 20060613
  Transmission Date: 20061013
  Serious: Yes (Other)
  Sender: FDA-Public Use
  Company Number: HQWYE215914JUN06

PATIENT
  Age: 13 Year
  Sex: Male

DRUGS (2)
  1. REFACTO [Suspect]
     Indication: FACTOR VIII DEFICIENCY
     Dosage: 2000 IU 1X PER 1 DAY INTRAVENOUS
     Route: 042
     Dates: start: 20060420, end: 20060524
  2. REFACTO [Suspect]
     Indication: PROPHYLAXIS
     Dosage: 2000 IU 1X PER 1 DAY INTRAVENOUS
     Route: 042
     Dates: start: 20060420, end: 20060524

REACTIONS (2)
  - FACTOR VIII INHIBITION [None]
  - SURGERY [None]
